FAERS Safety Report 8776857 (Version 1)
Quarter: 2012Q4

REPORT INFORMATION
  Report Type: 
  Country: US (occurrence: US)
  Receive Date: 20120911
  Receipt Date: 20120911
  Transmission Date: 20130627
  Serious: Yes (Death, Hospitalization)
  Sender: FDA-Public Use
  Company Number: US-GENZYME-RENA-1001624

PATIENT
  Age: 78 Year
  Sex: Male

DRUGS (1)
  1. RENVELA [Suspect]
     Indication: BLOOD PHOSPHORUS
     Dosage: 0.8 g, UNK
     Route: 065
     Dates: end: 20120821

REACTIONS (2)
  - Death [Fatal]
  - Hospitalisation [Unknown]
